APPROVED DRUG PRODUCT: GENTAK
Active Ingredient: GENTAMICIN SULFATE
Strength: EQ 0.3% BASE
Dosage Form/Route: SOLUTION/DROPS;OPHTHALMIC
Application: A064163 | Product #001
Applicant: PHARMOBEDIENT CONSULTING LLC
Approved: Oct 12, 2001 | RLD: No | RS: No | Type: DISCN